FAERS Safety Report 4749711-9 (Version None)
Quarter: 2005Q3

REPORT INFORMATION
  Report Type: 
  Country: None (occurrence: None)
  Receive Date: 20050822
  Receipt Date: 20050419
  Transmission Date: 20060218
  Serious: Yes (Hospitalization, Disabling)
  Sender: FDA-Public Use
  Company Number: US-MERCK-0504USA03746

PATIENT
  Age: 62 Year
  Sex: Female
  Weight: 75 kg

DRUGS (14)
  1. VIOXX [Suspect]
     Indication: ARTHRALGIA
     Route: 048
     Dates: start: 20000120, end: 20040901
  2. VIOXX [Suspect]
     Route: 048
  3. SYNTHROID [Concomitant]
     Route: 065
  4. SYNTHROID [Concomitant]
     Route: 065
  5. ESTRACE [Concomitant]
     Route: 065
  6. ESTRACE [Concomitant]
     Route: 048
  7. ACEON [Concomitant]
     Route: 065
  8. LAMISIL [Concomitant]
     Indication: FUNGAL SKIN INFECTION
     Route: 065
  9. ZOLOFT [Concomitant]
     Route: 065
  10. ZOLOFT [Concomitant]
     Route: 048
  11. ZOCOR [Concomitant]
     Route: 065
  12. GLUCOPHAGE [Concomitant]
     Route: 065
  13. VIOXX [Suspect]
     Indication: OSTEOARTHRITIS
     Route: 048
     Dates: start: 20000120, end: 20040901
  14. VIOXX [Suspect]
     Route: 048

REACTIONS (16)
  - ACUTE MYOCARDIAL INFARCTION [None]
  - CORONARY ARTERY DISEASE [None]
  - CYSTITIS [None]
  - DEPRESSION [None]
  - DIABETES MELLITUS NON-INSULIN-DEPENDENT [None]
  - DYSURIA [None]
  - FUNGAL SKIN INFECTION [None]
  - GASTROOESOPHAGEAL REFLUX DISEASE [None]
  - HAEMORRHOIDS [None]
  - HYPERLIPIDAEMIA [None]
  - HYPERTENSION [None]
  - HYPOKALAEMIA [None]
  - LARYNGOSPASM [None]
  - NEPHROLITHIASIS [None]
  - PAIN [None]
  - PALPITATIONS [None]
